FAERS Safety Report 9069985 (Version 1)
Quarter: 2013Q1

REPORT INFORMATION
  Report Type: Spontaneous
  Country: US (occurrence: US)
  Receive Date: 20130215
  Receipt Date: 20130215
  Transmission Date: 20140127
  Serious: No
  Sender: FDA-Public Use
  Company Number: US-ASTRAZENECA-2013SE08759

PATIENT
  Age: 34 Year
  Sex: Male
  Weight: 76.2 kg

DRUGS (9)
  1. SYMBICORT [Suspect]
     Indication: CHRONIC OBSTRUCTIVE PULMONARY DISEASE
     Dosage: 160/4.5 1 PUFF BID
     Route: 055
  2. NEXIUM [Suspect]
     Indication: GASTROOESOPHAGEAL REFLUX DISEASE
     Route: 048
  3. PRILOSEC [Suspect]
     Indication: GASTROOESOPHAGEAL REFLUX DISEASE
     Route: 048
     Dates: start: 2008
  4. LISINOPRIL [Suspect]
     Indication: HYPERTENSION
     Route: 048
  5. METOPROLOL [Concomitant]
     Indication: HEART RATE IRREGULAR
  6. SOMA [Concomitant]
     Indication: MUSCLE SPASMS
  7. ZOCOR [Concomitant]
     Indication: BLOOD CHOLESTEROL INCREASED
  8. XANAX [Concomitant]
     Indication: ANXIETY
  9. NORVASC [Concomitant]
     Indication: HYPERTENSION

REACTIONS (4)
  - Dyspepsia [Unknown]
  - Nausea [Recovered/Resolved]
  - Intentional drug misuse [Unknown]
  - Intentional drug misuse [Unknown]
